FAERS Safety Report 4845289-X (Version None)
Quarter: 2005Q4

REPORT INFORMATION
  Report Type: 
  Country: None (occurrence: None)
  Receive Date: 20051205
  Receipt Date: 19960311
  Transmission Date: 20060501
  Serious: Yes (Other)
  Sender: FDA-Public Use
  Company Number: US-GLAXOSMITHKLINE-A0243563A

PATIENT
  Age: 16 Year
  Sex: Male

DRUGS (2)
  1. PAXIL [Suspect]
     Indication: DEPRESSION
     Route: 048
     Dates: start: 19950918
  2. ALCOHOL [Suspect]

REACTIONS (4)
  - FEELING ABNORMAL [None]
  - FEELING JITTERY [None]
  - HOMICIDE [None]
  - PSYCHOTIC DISORDER [None]
